FAERS Safety Report 24200864 (Version 1)
Quarter: 2024Q3

REPORT INFORMATION
  Report Type: Spontaneous
  Country: IN (occurrence: IN)
  Receive Date: 20240812
  Receipt Date: 20240812
  Transmission Date: 20241017
  Serious: Yes (Other)
  Sender: MYLAN
  Company Number: IN-MYLANLABS-2024M1074115

PATIENT
  Age: 24 Year
  Sex: Female

DRUGS (2)
  1. ACETAMINOPHEN [Suspect]
     Active Substance: ACETAMINOPHEN
     Indication: Pain
     Dosage: UNK, BID
     Route: 065
  2. ACECLOFENAC\ACETAMINOPHEN [Suspect]
     Active Substance: ACECLOFENAC\ACETAMINOPHEN
     Indication: Pain
     Dosage: UNK, TID (THREE TIMES A DAY)
     Route: 065

REACTIONS (1)
  - Drug ineffective [Unknown]
